FAERS Safety Report 5031117-9 (Version None)
Quarter: 2006Q2

REPORT INFORMATION
  Report Type: 
  Country: None (occurrence: None)
  Receive Date: 20060621
  Receipt Date: 20041221
  Transmission Date: 20061013
  Serious: Yes (Other)
  Sender: FDA-Public Use
  Company Number: DK-BRISTOL-MYERS SQUIBB COMPANY-13353230

PATIENT
  Age: 30 Year
  Sex: Male

DRUGS (2)
  1. DIDANOSINE [Suspect]
  2. ZIDOVUDINE [Suspect]

REACTIONS (1)
  - PANCREATITIS [None]
